FAERS Safety Report 14526644 (Version 2)
Quarter: 2020Q2

REPORT INFORMATION
  Report Type: Spontaneous
  Country: IN (occurrence: IN)
  Receive Date: 20180213
  Receipt Date: 20200616
  Transmission Date: 20200713
  Serious: Yes (Death, Hospitalization)
  Sender: FDA-Public Use
  Company Number: IN-MYLANLABS-2018M1011702

PATIENT
  Age: 64 Year
  Sex: Female
  Weight: 70 kg

DRUGS (4)
  1. HERTRAZ 440 [Suspect]
     Active Substance: TRASTUZUMAB
     Indication: BREAST CANCER
     Dosage: 440 MILLIGRAM, Q3W,  (1 IN 3 WK)
     Route: 042
     Dates: start: 201309
  2. HERTRAZ 440 [Suspect]
     Active Substance: TRASTUZUMAB
     Indication: BREAST CANCER METASTATIC
     Dosage: 440 MG, Q3W
     Route: 042
     Dates: start: 20160924
  3. RESTYL [Concomitant]
     Indication: SLEEP DISORDER
     Dosage: 0.25 MG, QD, (FROM 6-7 MONTHS TILL DATE)
     Route: 048
  4. AMLONG [Concomitant]
     Active Substance: AMLODIPINE BESYLATE
     Indication: HYPERTENSION
     Dosage: 1 DF, QD, (FROM 3-4 YEARS TILL DATE)
     Route: 048

REACTIONS (9)
  - Death [Fatal]
  - Metastases to bone [Unknown]
  - Disease progression [Unknown]
  - Pleural effusion [Unknown]
  - Weight decreased [Unknown]
  - Metastases to lung [Unknown]
  - Injection site vesicles [Unknown]
  - Metastases to liver [Unknown]
  - Metastases to abdominal cavity [Unknown]

NARRATIVE: CASE EVENT DATE: 20180124
